FAERS Safety Report 6888398-6 (Version None)
Quarter: 2010Q3

REPORT INFORMATION
  Report Type: 
  Country: None (occurrence: None)
  Receive Date: 20100730
  Receipt Date: 20100721
  Transmission Date: 20110219
  Serious: Yes (Hospitalization)
  Sender: FDA-Public Use
  Company Number: CZ-ABBOTT-09P-217-0581990-01

PATIENT
  Sex: Male
  Weight: 56 kg

DRUGS (11)
  1. HUMIRA [Suspect]
     Indication: CROHN'S DISEASE
     Route: 058
     Dates: start: 20090119, end: 20090623
  2. 5 ASA [Concomitant]
     Indication: CROHN'S DISEASE
     Dosage: 4-0-0
     Dates: start: 20071009, end: 20090605
  3. 5 ASA [Concomitant]
     Indication: INFLAMMATORY BOWEL DISEASE
     Dosage: 4-0-0
     Dates: start: 20090615
  4. MUTAFLOR [Concomitant]
     Indication: INFLAMMATORY BOWEL DISEASE
     Dates: start: 20090616, end: 20090625
  5. BUDENOFALK [Concomitant]
     Indication: CROHN'S DISEASE
     Dosage: 2-0-0
     Dates: start: 20071009, end: 20090615
  6. BUDENOFALK [Concomitant]
     Indication: INFLAMMATORY BOWEL DISEASE
     Dates: start: 20090616, end: 20090625
  7. PREDNISONE TAB [Concomitant]
     Indication: CROHN'S DISEASE
     Dosage: 1-0-0
     Dates: start: 20071007, end: 20090615
  8. PREDNISONE TAB [Concomitant]
     Indication: INFLAMMATORY BOWEL DISEASE
     Dates: start: 20090605, end: 20090615
  9. MEDROL [Concomitant]
     Indication: INFLAMMATORY BOWEL DISEASE
     Dates: start: 20090616, end: 20090625
  10. ENTIZOL [Concomitant]
     Indication: INFLAMMATORY BOWEL DISEASE
     Dates: start: 20090616, end: 20090625
  11. BISEPTOL [Concomitant]
     Indication: INFLAMMATORY BOWEL DISEASE
     Dates: start: 20090616, end: 20090625

REACTIONS (1)
  - COLITIS ULCERATIVE [None]
